FAERS Safety Report 19034398 (Version 1)
Quarter: 2021Q1

REPORT INFORMATION
  Report Type: Report from Study
  Country: BR (occurrence: BR)
  Receive Date: 20210319
  Receipt Date: 20210319
  Transmission Date: 20210420
  Serious: Yes (Other)
  Sender: FDA-Public Use
  Company Number: BR-TAKEDA-2021TUS013454

PATIENT
  Age: 67 Year
  Sex: Female
  Weight: 74 kg

DRUGS (13)
  1. MELATONIN [Concomitant]
     Active Substance: MELATONIN
     Indication: INSOMNIA
     Dosage: 5 MILLIGRAM
     Route: 048
  2. TEDUGLUTIDE [Suspect]
     Active Substance: TEDUGLUTIDE
     Indication: FUNCTIONAL GASTROINTESTINAL DISORDER
  3. TEDUGLUTIDE [Suspect]
     Active Substance: TEDUGLUTIDE
     Indication: SHORT-BOWEL SYNDROME
     Dosage: 0.32 MILLILITER
     Route: 058
     Dates: start: 20210225
  4. TEDUGLUTIDE [Suspect]
     Active Substance: TEDUGLUTIDE
     Indication: FUNCTIONAL GASTROINTESTINAL DISORDER
  5. TEDUGLUTIDE [Suspect]
     Active Substance: TEDUGLUTIDE
     Indication: FUNCTIONAL GASTROINTESTINAL DISORDER
  6. LUFTAL MAX [Concomitant]
     Indication: PRODUCT USED FOR UNKNOWN INDICATION
     Dosage: UNK
     Route: 065
  7. TEDUGLUTIDE [Suspect]
     Active Substance: TEDUGLUTIDE
     Indication: SHORT-BOWEL SYNDROME
     Dosage: 0.32 MILLILITER
     Route: 058
     Dates: start: 20210225
  8. TEDUGLUTIDE [Suspect]
     Active Substance: TEDUGLUTIDE
     Indication: FUNCTIONAL GASTROINTESTINAL DISORDER
  9. IMOSEC [Concomitant]
     Active Substance: LOPERAMIDE
     Indication: PRODUCT USED FOR UNKNOWN INDICATION
     Dosage: 7 DOSAGE FORM, QD
     Route: 065
  10. TEDUGLUTIDE [Suspect]
     Active Substance: TEDUGLUTIDE
     Indication: SHORT-BOWEL SYNDROME
     Dosage: 0.32 MILLILITER
     Route: 058
     Dates: start: 20210225
  11. RIVOTRIL [Concomitant]
     Active Substance: CLONAZEPAM
     Indication: INSOMNIA
     Route: 065
  12. TEDUGLUTIDE [Suspect]
     Active Substance: TEDUGLUTIDE
     Indication: SHORT-BOWEL SYNDROME
     Dosage: 0.32 MILLILITER
     Route: 058
     Dates: start: 20210225
  13. XARELTO [Concomitant]
     Active Substance: RIVAROXABAN
     Indication: PRODUCT USED FOR UNKNOWN INDICATION
     Dosage: UNK
     Route: 065

REACTIONS (35)
  - Ileostomy [Recovering/Resolving]
  - Cold sweat [Recovered/Resolved]
  - Dehydration [Recovering/Resolving]
  - Aphonia [Not Recovered/Not Resolved]
  - Fatigue [Recovering/Resolving]
  - Apathy [Not Recovered/Not Resolved]
  - Anxiety [Recovering/Resolving]
  - Weight fluctuation [Not Recovered/Not Resolved]
  - Malaise [Recovered/Resolved]
  - Chromaturia [Recovering/Resolving]
  - Hyperphagia [Not Recovered/Not Resolved]
  - Abdominal distension [Not Recovered/Not Resolved]
  - Abnormal faeces [Unknown]
  - Pyrexia [Recovering/Resolving]
  - Urine output increased [Recovering/Resolving]
  - Gastrointestinal stoma complication [Not Recovered/Not Resolved]
  - Frequent bowel movements [Recovering/Resolving]
  - Weight decreased [Unknown]
  - Eating disorder symptom [Recovering/Resolving]
  - Application site haemorrhage [Recovering/Resolving]
  - Blood pressure decreased [Recovered/Resolved]
  - Feeling abnormal [Recovering/Resolving]
  - Abdominal pain [Recovering/Resolving]
  - Headache [Not Recovered/Not Resolved]
  - Vomiting [Recovering/Resolving]
  - Dyspepsia [Recovering/Resolving]
  - Hiccups [Recovering/Resolving]
  - Flatulence [Recovering/Resolving]
  - Chills [Unknown]
  - Pain in extremity [Recovering/Resolving]
  - Nausea [Recovered/Resolved]
  - Insomnia [Recovering/Resolving]
  - Stoma site pain [Not Recovered/Not Resolved]
  - Asthenia [Recovering/Resolving]
  - Poor quality sleep [Not Recovered/Not Resolved]

NARRATIVE: CASE EVENT DATE: 20210225
